FAERS Safety Report 23648183 (Version 1)
Quarter: 2024Q1

REPORT INFORMATION
  Report Type: Spontaneous
  Country: CN (occurrence: CN)
  Receive Date: 20240319
  Receipt Date: 20240319
  Transmission Date: 20240410
  Serious: Yes (Death, Life-Threatening, Hospitalization, Other)
  Sender: FDA-Public Use
  Company Number: CN-PFIZER INC-PV202400036320

PATIENT
  Age: 32 Year
  Sex: Female

DRUGS (24)
  1. METHYLPREDNISOLONE SODIUM SUCCINATE [Suspect]
     Active Substance: METHYLPREDNISOLONE SODIUM SUCCINATE
     Indication: Coxsackie myocarditis
     Dosage: UNK
     Route: 042
     Dates: start: 20220829
  2. METHYLPREDNISOLONE SODIUM SUCCINATE [Suspect]
     Active Substance: METHYLPREDNISOLONE SODIUM SUCCINATE
     Indication: Electroconvulsive therapy
  3. ACYCLOVIR [Suspect]
     Active Substance: ACYCLOVIR
     Indication: Coxsackie myocarditis
     Dosage: UNK
     Dates: start: 20220829
  4. ACYCLOVIR [Suspect]
     Active Substance: ACYCLOVIR
     Indication: Antiviral treatment
  5. IMMUNE GLOBULIN NOS [Suspect]
     Active Substance: IMMUNE GLOBULIN NOS
     Indication: Coxsackie myocarditis
     Dosage: UNK
     Dates: start: 20220829
  6. IMMUNE GLOBULIN NOS [Suspect]
     Active Substance: IMMUNE GLOBULIN NOS
     Indication: Electroconvulsive therapy
  7. LEVOSIMENDAN [Suspect]
     Active Substance: LEVOSIMENDAN
     Indication: Coxsackie myocarditis
     Dosage: UNK
     Dates: start: 20220829
  8. LEVOSIMENDAN [Suspect]
     Active Substance: LEVOSIMENDAN
     Indication: Cardiac rehabilitation therapy
  9. SILDENAFIL [Suspect]
     Active Substance: SILDENAFIL
     Indication: Coxsackie myocarditis
     Dosage: UNK
     Dates: start: 20220829
  10. SILDENAFIL [Suspect]
     Active Substance: SILDENAFIL
     Indication: Cardiac rehabilitation therapy
  11. MOXIFLOXACIN [Suspect]
     Active Substance: MOXIFLOXACIN
     Indication: Coxsackie myocarditis
     Dosage: UNK
     Dates: start: 20220829
  12. MOXIFLOXACIN [Suspect]
     Active Substance: MOXIFLOXACIN
     Indication: Anti-infective therapy
  13. ENTECAVIR [Suspect]
     Active Substance: ENTECAVIR
     Indication: Coxsackie myocarditis
     Dosage: UNK
     Dates: start: 20220829
  14. ENTECAVIR [Suspect]
     Active Substance: ENTECAVIR
     Indication: Anti-infective therapy
  15. ADEFOVIR [Suspect]
     Active Substance: ADEFOVIR
     Indication: Coxsackie myocarditis
     Dosage: UNK
     Dates: start: 20220829
  16. ADEFOVIR [Suspect]
     Active Substance: ADEFOVIR
     Indication: Anti-infective therapy
  17. GLUTATHIONE [Suspect]
     Active Substance: GLUTATHIONE
     Indication: Viral myocarditis
     Dosage: UNK
     Dates: start: 20220829
  18. GLUTATHIONE [Suspect]
     Active Substance: GLUTATHIONE
     Indication: Antiviral prophylaxis
  19. PANTOPRAZOLE [Suspect]
     Active Substance: PANTOPRAZOLE
     Indication: Antacid therapy
     Dosage: UNK
     Dates: start: 20220829
  20. TRIMETAZIDINE [Suspect]
     Active Substance: TRIMETAZIDINE
     Indication: Coxsackie myocarditis
     Dosage: UNK
     Dates: start: 20220829
  21. TRIMETAZIDINE [Suspect]
     Active Substance: TRIMETAZIDINE
     Indication: Nutritional supplementation
  22. TRIMETAZIDINE [Suspect]
     Active Substance: TRIMETAZIDINE
     Indication: Nutritional supplementation
  23. TRIMETAZIDINE [Suspect]
     Active Substance: TRIMETAZIDINE
     Indication: Nutritional supplementation
  24. HEPARIN [Suspect]
     Active Substance: HEPARIN SODIUM
     Indication: Anticoagulant therapy
     Dosage: UNK, LOW-MOLECULAR-WEIGHT HEPARIN
     Dates: start: 20220829

REACTIONS (2)
  - Drug ineffective [Fatal]
  - Condition aggravated [Fatal]
